FAERS Safety Report 9436672 (Version 1)
Quarter: 2013Q3

REPORT INFORMATION
  Report Type: Spontaneous
  Country: JP (occurrence: JP)
  Receive Date: 20130802
  Receipt Date: 20130802
  Transmission Date: 20140515
  Serious: Yes (Other)
  Sender: FDA-Public Use
  Company Number: JP-BAYER-2013-090681

PATIENT
  Age: 32 Year
  Sex: Female

DRUGS (4)
  1. YAZ [Suspect]
     Route: 048
  2. LEXOTAN [Concomitant]
     Route: 048
  3. ROHYPNOL [Concomitant]
     Dosage: UNK
     Route: 048
  4. VEGETAMIN A [Concomitant]
     Dosage: UNK
     Route: 048

REACTIONS (2)
  - Suicide attempt [None]
  - Intentional overdose [None]
